FAERS Safety Report 6415620-2 (Version None)
Quarter: 2009Q4

REPORT INFORMATION
  Report Type: 
  Country: None (occurrence: None)
  Receive Date: 20091027
  Receipt Date: 20091016
  Transmission Date: 20100525
  Serious: Yes (Death)
  Sender: FDA-Public Use
  Company Number: EC-ROCHE-662199

PATIENT
  Age: 50 Year
  Sex: Male

DRUGS (1)
  1. MIRCERA [Suspect]
     Dosage: FREQUENCY: SINGLE DOSE
     Route: 058
     Dates: start: 20090901, end: 20090901

REACTIONS (1)
  - RENAL FAILURE [None]
